FAERS Safety Report 7569040-8 (Version None)
Quarter: 2011Q2

REPORT INFORMATION
  Report Type: 
  Country: None (occurrence: None)
  Receive Date: 20110623
  Receipt Date: 20110615
  Transmission Date: 20111010
  Serious: Yes (Death)
  Sender: FDA-Public Use
  Company Number: JP-AMGEN-JPNCT2011031989

PATIENT
  Age: 66 Year
  Sex: Male
  Weight: 58 kg

DRUGS (20)
  1. HIRUDOID [Concomitant]
     Dosage: UNK
     Route: 062
  2. PANITUMUMAB [Suspect]
     Indication: COLORECTAL CANCER
     Dosage: 6 MG/KG, Q2WK
     Route: 041
     Dates: start: 20100622
  3. FLUOROURACIL [Suspect]
     Indication: COLORECTAL CANCER
     Route: 041
     Dates: start: 20100622, end: 20101124
  4. CLOBETASOL PROPIONATE [Concomitant]
     Dosage: UNK
     Route: 062
  5. VOALLA [Concomitant]
     Dosage: UNK
     Route: 062
  6. MINOCYCLINE HCL [Concomitant]
     Dosage: UNK
     Route: 048
  7. FLUOROURACIL [Suspect]
     Route: 041
     Dates: start: 20101217, end: 20110222
  8. TOPSYM [Concomitant]
     Dosage: UNK
     Route: 062
  9. GOSHAJINKIGAN [Concomitant]
     Dosage: UNK
     Route: 048
  10. IRINOTECAN HCL [Suspect]
     Indication: COLORECTAL CANCER
     Route: 041
     Dates: start: 20100622, end: 20101124
  11. LEUCOVORIN CALCIUM [Suspect]
     Indication: COLORECTAL CANCER
     Route: 041
     Dates: start: 20100622, end: 20101124
  12. OXALIPLATIN [Suspect]
     Indication: COLORECTAL CANCER
     Route: 041
     Dates: start: 20101217, end: 20110222
  13. HACHIAZULE [Concomitant]
     Dosage: UNK
     Route: 049
  14. RABEPRAZOLE SODIUM [Concomitant]
     Dosage: UNK
     Route: 048
  15. LEUCOVORIN CALCIUM [Suspect]
     Route: 041
     Dates: start: 20101217, end: 20110222
  16. DECADRON [Concomitant]
     Dosage: UNK
     Route: 042
  17. METHYCOBAL [Concomitant]
     Dosage: UNK
     Route: 048
  18. RAMELTEON [Concomitant]
     Dosage: UNK
     Route: 042
  19. PROMAC [Concomitant]
     Dosage: UNK
     Route: 048
  20. SHOUSAIKOTOU [Concomitant]
     Dosage: UNK
     Route: 049

REACTIONS (7)
  - DERMATITIS ACNEIFORM [None]
  - STOMATITIS [None]
  - HYPOMAGNESAEMIA [None]
  - INFUSION RELATED REACTION [None]
  - DEATH [None]
  - PARONYCHIA [None]
  - HYPOKALAEMIA [None]
